FAERS Safety Report 6904234-3 (Version None)
Quarter: 2010Q3

REPORT INFORMATION
  Report Type: 
  Country: None (occurrence: None)
  Receive Date: 20100804
  Receipt Date: 20090330
  Transmission Date: 20110219
  Serious: No
  Sender: FDA-Public Use
  Company Number: US-PFIZER INC-2009191136

PATIENT
  Sex: Female
  Weight: 76.2 kg

DRUGS (4)
  1. LYRICA [Suspect]
     Indication: FIBROMYALGIA
     Dosage: 300 MG/DAY
     Route: 048
     Dates: start: 20080301, end: 20090301
  2. TYLENOL [Concomitant]
     Dosage: UNK
     Route: 048
  3. ZOLOFT [Concomitant]
     Dosage: UNK
     Route: 048
  4. ATIVAN [Concomitant]
     Dosage: UNK
     Route: 048

REACTIONS (4)
  - BLOOD CHOLESTEROL INCREASED [None]
  - BLOOD GLUCOSE INCREASED [None]
  - DRUG INEFFECTIVE [None]
  - HYPERTENSION [None]
